FAERS Safety Report 4378565-8 (Version None)
Quarter: 2004Q2

REPORT INFORMATION
  Report Type: 
  Country: None (occurrence: None)
  Receive Date: 20040616
  Receipt Date: 20040608
  Transmission Date: 20050107
  Serious: Yes (Other)
  Sender: FDA-Public Use
  Company Number: ES-GLAXOSMITHKLINE-B0335487A

PATIENT
  Age: 39 Year
  Sex: Female

DRUGS (1)
  1. ZINNAT [Suspect]
     Dosage: 1500MG PER DAY
     Route: 048
     Dates: start: 20040601, end: 20040607

REACTIONS (1)
  - ANAL HAEMORRHAGE [None]
